FAERS Safety Report 17592710 (Version 3)
Quarter: 2020Q2

REPORT INFORMATION
  Report Type: Spontaneous
  Country: PL (occurrence: PL)
  Receive Date: 20200327
  Receipt Date: 20200508
  Transmission Date: 20200713
  Serious: Yes (Life-Threatening, Hospitalization, Other)
  Sender: FDA-Public Use
  Company Number: PL-MYLANLABS-2020M1032903

PATIENT
  Age: 52 Year
  Sex: Female

DRUGS (6)
  1. METOPROLOL. [Suspect]
     Active Substance: METOPROLOL
     Indication: SINUS TACHYCARDIA
     Dosage: LONG-TERM THERAPY; CONTROLLED-RELEASE DOSE,100MG/D
  2. METOCLOPRAMIDE. [Interacting]
     Active Substance: METOCLOPRAMIDE
     Indication: GASTROOESOPHAGEAL REFLUX DISEASE
     Dosage: 30 MILLIGRAM, QD
     Route: 048
  3. DULOXETINE. [Interacting]
     Active Substance: DULOXETINE
     Indication: APATHY
  4. LANZOPRAZOL [Interacting]
     Active Substance: LANSOPRAZOLE
     Indication: GASTROOESOPHAGEAL REFLUX DISEASE
     Dosage: 15 MILLIGRAM, QD
     Route: 048
  5. DULOXETINE. [Interacting]
     Active Substance: DULOXETINE
     Indication: GENERALISED ANXIETY DISORDER
     Dosage: 30 MILLIGRAM, QD
  6. DULOXETINE. [Interacting]
     Active Substance: DULOXETINE
     Indication: DECREASED IMMUNE RESPONSIVENESS

REACTIONS (5)
  - Syncope [Unknown]
  - Drug interaction [Unknown]
  - Loss of consciousness [Unknown]
  - Bradycardia [Unknown]
  - Off label use [Unknown]
